FAERS Safety Report 9387033 (Version 1)
Quarter: 2013Q3

REPORT INFORMATION
  Report Type: Spontaneous
  Country: US (occurrence: US)
  Receive Date: 20130708
  Receipt Date: 20130708
  Transmission Date: 20140515
  Serious: No
  Sender: FDA-Public Use
  Company Number: US-BRISTOL-MYERS SQUIBB COMPANY-16707127

PATIENT
  Age: 29 Year
  Sex: Female
  Weight: 63.94 kg

DRUGS (3)
  1. ABILIFY DISCMELT TABS [Suspect]
     Indication: BIPOLAR II DISORDER
     Dosage: ABILIFY ODT
     Route: 048
     Dates: start: 2010
  2. LAMICTAL [Concomitant]
  3. GEODON [Concomitant]

REACTIONS (1)
  - Abdominal distension [Not Recovered/Not Resolved]
